FAERS Safety Report 9671698 (Version 1)
Quarter: 2013Q4

REPORT INFORMATION
  Report Type: Spontaneous
  Country: US (occurrence: None)
  Receive Date: 20131105
  Receipt Date: 20131105
  Transmission Date: 20140711
  Serious: Yes (Hospitalization)
  Sender: FDA-Public Use
  Company Number: None

PATIENT
  Age: 63 Year
  Sex: Female
  Weight: 54.5 kg

DRUGS (13)
  1. LINZESS (LINACLOTIDE) [Suspect]
     Route: 048
     Dates: start: 20131016, end: 20131022
  2. CYCLOBENZAPRINE [Concomitant]
  3. DULOXETINE [Concomitant]
  4. FENTANYL [Concomitant]
  5. HYDROXYCHLOROQUINE [Concomitant]
  6. LANSOPRAZOLE [Concomitant]
  7. LEFLUNOMIDE [Concomitant]
  8. LISINOPRIL [Concomitant]
  9. PILOCARBIN [Concomitant]
  10. PREDNISONE [Concomitant]
  11. PROPRANOLOL [Concomitant]
  12. SUCRALFATE [Concomitant]
  13. MAXZIDE-25 [Concomitant]

REACTIONS (1)
  - Rectal prolapse [None]
